FAERS Safety Report 18622777 (Version 1)
Quarter: 2020Q4

REPORT INFORMATION
  Report Type: Spontaneous
  Country: US (occurrence: US)
  Receive Date: 20201216
  Receipt Date: 20201216
  Transmission Date: 20210114
  Serious: No
  Sender: FDA-Public Use
  Company Number: US-TARO-2020TAR00722

PATIENT

DRUGS (1)
  1. FLUOROURACIL TOPICAL SOLUTION USP 2% [Suspect]
     Active Substance: FLUOROURACIL
     Indication: PIGMENTATION DISORDER
     Dosage: UNK, CONTAINER SIZE: 10ML
     Route: 065

REACTIONS (1)
  - Therapeutic product effect incomplete [Unknown]
